FAERS Safety Report 25923360 (Version 1)
Quarter: 2025Q4

REPORT INFORMATION
  Report Type: Spontaneous
  Country: US (occurrence: None)
  Receive Date: 20251015
  Receipt Date: 20251015
  Transmission Date: 20260117
  Serious: No
  Sender: BANNER
  Company Number: US-PTA-006206

PATIENT

DRUGS (2)
  1. NAPROXEN [Suspect]
     Active Substance: NAPROXEN
     Indication: Pain
     Route: 048
     Dates: start: 20250724
  2. IBUPROFEN [Concomitant]
     Active Substance: IBUPROFEN
     Dates: start: 20250724

REACTIONS (2)
  - Panic attack [Unknown]
  - Contraindicated product administered [Unknown]

NARRATIVE: CASE EVENT DATE: 20250724
